FAERS Safety Report 7578981-7 (Version None)
Quarter: 2011Q2

REPORT INFORMATION
  Report Type: 
  Country: None (occurrence: None)
  Receive Date: 20110628
  Receipt Date: 20091116
  Transmission Date: 20111010
  Serious: Yes (Other)
  Sender: FDA-Public Use
  Company Number: PHHY2009GB51238

PATIENT
  Sex: Female
  Weight: 2.23 kg

DRUGS (4)
  1. BUDESONIDE [Suspect]
     Dosage: MOTHER DOSE: 1 DF, BID
     Route: 064
     Dates: start: 20051001
  2. FLUOXETINE HCL [Suspect]
     Indication: DEPRESSION
     Dosage: MOTHER DOSE: 10 MG, UNK
     Route: 064
  3. FORMOTEROL FUMARATE [Suspect]
     Indication: ASTHMA
     Dosage: MOTHER DOSE: 1 DF, BID
     Route: 064
     Dates: start: 20051001
  4. ALBUTEROL [Suspect]
     Indication: ASTHMA
     Dosage: UNK
     Route: 064
     Dates: start: 20051001

REACTIONS (2)
  - DRUG EXPOSURE DURING PREGNANCY [None]
  - SEPSIS [None]
